FAERS Safety Report 18576580 (Version 1)
Quarter: 2020Q4

REPORT INFORMATION
  Report Type: Report from Study
  Country: BR (occurrence: BR)
  Receive Date: 20201203
  Receipt Date: 20201203
  Transmission Date: 20210114
  Serious: Yes (Death, Hospitalization, Other)
  Sender: FDA-Public Use
  Company Number: NVSC2020BR322276

PATIENT
  Sex: Male

DRUGS (1)
  1. VOTRIENT [Suspect]
     Active Substance: PAZOPANIB HYDROCHLORIDE
     Indication: PRODUCT USED FOR UNKNOWN INDICATION
     Dosage: UNK
     Route: 065
     Dates: start: 20200910

REACTIONS (9)
  - Neoplasm malignant [Fatal]
  - Dyspnoea [Unknown]
  - COVID-19 [Unknown]
  - Gait inability [Unknown]
  - Asthenia [Unknown]
  - Metastasis [Unknown]
  - Metastases to lung [Unknown]
  - Respiratory failure [Unknown]
  - Speech disorder [Unknown]
